FAERS Safety Report 10953673 (Version 4)
Quarter: 2015Q2

REPORT INFORMATION
  Report Type: Spontaneous
  Country: US (occurrence: US)
  Receive Date: 20150325
  Receipt Date: 20150514
  Transmission Date: 20150821
  Serious: Yes (Hospitalization, Disabling, Other)
  Sender: FDA-Public Use
  Company Number: US-009507513-1503USA011256

PATIENT
  Sex: Female
  Weight: 72.7 kg

DRUGS (4)
  1. PROPRANOLOL HYDROCHLORIDE. [Concomitant]
     Active Substance: PROPRANOLOL HYDROCHLORIDE
     Dosage: UNK
     Route: 048
  2. FOSAMAX [Suspect]
     Active Substance: ALENDRONATE SODIUM
     Indication: BONE DISORDER
     Dosage: 70 MG, QW
     Route: 048
     Dates: start: 1988, end: 20130406
  3. FOSAMAX [Suspect]
     Active Substance: ALENDRONATE SODIUM
     Dosage: 5 MG, QD
     Route: 048
     Dates: start: 2000
  4. WARFARIN [Concomitant]
     Active Substance: WARFARIN
     Dosage: UNK

REACTIONS (16)
  - Loose tooth [Not Recovered/Not Resolved]
  - Osteoporosis [Unknown]
  - Procedural complication [Unknown]
  - Musculoskeletal stiffness [Not Recovered/Not Resolved]
  - Breast cancer [Recovering/Resolving]
  - Hysterectomy [Unknown]
  - Fall [Unknown]
  - Hypertension [Unknown]
  - Pain in extremity [Unknown]
  - Neck surgery [Unknown]
  - Gait disturbance [Not Recovered/Not Resolved]
  - Femur fracture [Recovering/Resolving]
  - Jaw disorder [Unknown]
  - Femur fracture [Recovered/Resolved]
  - Large intestinal polypectomy [Unknown]
  - Large intestine polyp [Unknown]

NARRATIVE: CASE EVENT DATE: 1999
